FAERS Safety Report 19913494 (Version 1)
Quarter: 2021Q4

REPORT INFORMATION
  Report Type: Spontaneous
  Country: US (occurrence: US)
  Receive Date: 20211004
  Receipt Date: 20211004
  Transmission Date: 20220303
  Serious: No
  Sender: FDA-Public Use
  Company Number: US-009507513-2109USA002841

PATIENT
  Age: 50 Year
  Sex: Female

DRUGS (2)
  1. NOXAFIL [Suspect]
     Active Substance: POSACONAZOLE
     Indication: Keratitis fungal
     Dosage: A 600-MG LOADING DOSE ON DAY 1 (BUT DUE TO MISUNDERSTANDING CONTINUED TAKING 600 MG DAILY)
     Route: 048
  2. NOXAFIL [Suspect]
     Active Substance: POSACONAZOLE
     Indication: Fusarium infection
     Dosage: 300 MG DAILY
     Route: 048

REACTIONS (2)
  - Product use in unapproved indication [Unknown]
  - Incorrect dose administered [Unknown]
